FAERS Safety Report 9834988 (Version 3)
Quarter: 2014Q2

REPORT INFORMATION
  Report Type: Spontaneous
  Country: US (occurrence: US)
  Receive Date: 20140122
  Receipt Date: 20140414
  Transmission Date: 20141212
  Serious: Yes (Other)
  Sender: FDA-Public Use
  Company Number: US-ELI_LILLY_AND_COMPANY-US201401003303

PATIENT
  Sex: Female
  Weight: 56.69 kg

DRUGS (13)
  1. HUMALOG LISPRO [Suspect]
     Indication: TYPE 1 DIABETES MELLITUS
     Dosage: UNK UNK, PRN
     Route: 065
  2. LANTUS [Concomitant]
     Dosage: 4 U, BID
  3. LANTUS [Concomitant]
     Dosage: 4 U, EACH MORNING
  4. LANTUS [Concomitant]
     Dosage: 3 U, EACH EVENING
  5. LANTUS [Concomitant]
     Dosage: 4 U, BID
  6. ASPIRIN [Concomitant]
     Dosage: 81 MG, QD
  7. FISH OIL [Concomitant]
     Dosage: 2000 MG, BID
  8. CALCIUM +VIT D [Concomitant]
     Dosage: 1 DF, QD
  9. VITAMIN C                          /00008001/ [Concomitant]
     Dosage: 500 MG, QD
  10. VITAMIN B-12 [Concomitant]
     Dosage: 1000 UG, QD
  11. WARFARIN [Concomitant]
     Dosage: UNK, PRN
  12. PROLIA [Concomitant]
     Dosage: UNK, OTHER
  13. VALTREX [Concomitant]
     Dosage: 1 G, TID

REACTIONS (4)
  - Diabetic retinopathy [Not Recovered/Not Resolved]
  - Visual acuity reduced [Not Recovered/Not Resolved]
  - Blood glucose fluctuation [Unknown]
  - Glycosylated haemoglobin increased [Unknown]
